FAERS Safety Report 22187005 (Version 2)
Quarter: 2024Q1

REPORT INFORMATION
  Report Type: Other
  Country: US (occurrence: None)
  Receive Date: 20230407
  Receipt Date: 20240322
  Transmission Date: 20240409
  Serious: No
  Sender: FDA-Public Use
  Company Number: US-ROCHE-3326629

PATIENT
  Age: 41 Year
  Sex: Female
  Weight: 67.192 kg

DRUGS (7)
  1. OCREVUS [Suspect]
     Active Substance: OCRELIZUMAB
     Indication: Multiple sclerosis
     Dosage: STRENGTH 300/ 10ML; 300 MG ON DAY 0, 14, THEN 600 MG EVERY 6 MONTHS?SUBSEQUENT DOSES OF OCRELIUZMAB:
     Route: 042
     Dates: start: 202106
  2. MODAFINIL [Concomitant]
     Active Substance: MODAFINIL
     Dosage: 100 MG 1 TABLET
  3. IBUPROFEN [Concomitant]
     Active Substance: IBUPROFEN
  4. PROVIGIL [Concomitant]
     Active Substance: MODAFINIL
  5. METHYLPREDNISOLONE [Concomitant]
     Active Substance: METHYLPREDNISOLONE
  6. ACETAMINOPHEN [Concomitant]
     Active Substance: ACETAMINOPHEN
  7. DIPHENHYDRAMINE HYDROCHLORIDE [Concomitant]
     Active Substance: DIPHENHYDRAMINE HYDROCHLORIDE

REACTIONS (4)
  - Paraesthesia [Unknown]
  - Neck pain [Unknown]
  - Demyelination [Unknown]
  - Fatigue [Unknown]
